FAERS Safety Report 16741532 (Version 5)
Quarter: 2022Q4

REPORT INFORMATION
  Report Type: Spontaneous
  Country: CA (occurrence: CA)
  Receive Date: 20190826
  Receipt Date: 20221014
  Transmission Date: 20230113
  Serious: Yes (Congenital Anomaly, Other)
  Sender: FDA-Public Use
  Company Number: CA-BRISTOL-MYERS SQUIBB COMPANY-BMS-2019-080379

PATIENT
  Age: 52 Year
  Sex: Male

DRUGS (30)
  1. SUSTIVA [Suspect]
     Active Substance: EFAVIRENZ
     Indication: HIV infection
     Route: 048
  2. VIDEX EC [Suspect]
     Active Substance: DIDANOSINE
     Indication: HIV infection
     Dosage: UNK
     Route: 048
  3. ZERIT [Suspect]
     Active Substance: STAVUDINE
     Indication: HIV infection
     Route: 065
  4. ABACAVIR [Concomitant]
     Active Substance: ABACAVIR
     Indication: HIV infection
     Dosage: UNK
     Route: 065
  5. LOPINAVIR\RITONAVIR [Concomitant]
     Active Substance: LOPINAVIR\RITONAVIR
     Indication: HIV infection
     Route: 065
  6. ABACAVIR SULFATE [Concomitant]
     Active Substance: ABACAVIR SULFATE
     Indication: HIV infection
     Route: 065
  7. DELAVIRDINE MESYLATE [Concomitant]
     Active Substance: DELAVIRDINE MESYLATE
     Indication: HIV infection
     Route: 065
  8. DIDANOSINE [Concomitant]
     Active Substance: DIDANOSINE
     Indication: HIV infection
     Route: 065
  9. ENFUVIRTIDE [Concomitant]
     Active Substance: ENFUVIRTIDE
     Indication: HIV infection
     Route: 058
  10. ETRAVIRINE [Concomitant]
     Active Substance: ETRAVIRINE
     Indication: HIV infection
     Route: 048
  11. INTELENCE [Concomitant]
     Active Substance: ETRAVIRINE
     Indication: HIV infection
     Route: 048
  12. INDINAVIR SULFATE [Concomitant]
     Active Substance: INDINAVIR SULFATE
     Indication: HIV infection
     Route: 048
  13. KALETRA [Concomitant]
     Active Substance: LOPINAVIR\RITONAVIR
     Indication: HIV infection
     Route: 048
  14. LAMIVUDINE [Concomitant]
     Active Substance: LAMIVUDINE
     Indication: HIV infection
     Route: 065
  15. LOPINAVIR [Concomitant]
     Active Substance: LOPINAVIR
     Indication: HIV infection
     Route: 065
  16. NELFINAVIR MESYLATE [Concomitant]
     Active Substance: NELFINAVIR MESYLATE
     Indication: HIV infection
     Route: 065
  17. NEVIRAPINE [Concomitant]
     Active Substance: NEVIRAPINE
     Indication: HIV infection
     Route: 065
  18. NORVIR [Concomitant]
     Active Substance: RITONAVIR
     Indication: HIV infection
     Route: 048
  19. RALTEGRAVIR [Concomitant]
     Active Substance: RALTEGRAVIR
     Indication: HIV infection
     Dosage: 400 MILLIGRAM
     Route: 048
  20. RITONAVIR [Concomitant]
     Active Substance: RITONAVIR
     Indication: HIV infection
     Route: 065
  21. RALTEGRAVIR POTASSIUM [Concomitant]
     Active Substance: RALTEGRAVIR POTASSIUM
     Indication: HIV infection
     Route: 065
  22. SAQUINAVIR [Concomitant]
     Active Substance: SAQUINAVIR
     Indication: HIV infection
     Route: 048
  23. TENOFOVIR DISOPROXIL FUMARATE [Concomitant]
     Active Substance: TENOFOVIR DISOPROXIL FUMARATE
     Indication: HIV infection
     Route: 048
  24. VIREAD [Concomitant]
     Active Substance: TENOFOVIR DISOPROXIL FUMARATE
     Indication: HIV infection
     Route: 048
  25. ZIDOVUDINE [Concomitant]
     Active Substance: ZIDOVUDINE
     Indication: HIV infection
     Route: 048
  26. NELFINAVIR [Concomitant]
     Active Substance: NELFINAVIR
     Indication: HIV infection
     Dosage: UNK
     Route: 065
  27. ENFUVIRTIDE [Concomitant]
     Active Substance: ENFUVIRTIDE
     Indication: HIV infection
     Dosage: UNK
     Route: 058
  28. TENOFOVIR [Concomitant]
     Active Substance: TENOFOVIR
     Indication: HIV infection
     Dosage: UNK
     Route: 048
  29. RESCRIPTOR [Concomitant]
     Active Substance: DELAVIRDINE MESYLATE
     Indication: HIV infection
     Dosage: UNK
     Route: 065
  30. DARUNAVIR [Concomitant]
     Active Substance: DARUNAVIR
     Indication: HIV infection
     Dosage: UNK
     Route: 048

REACTIONS (5)
  - Eyelid ptosis [Recovering/Resolving]
  - Diplopia [Recovering/Resolving]
  - Lipodystrophy acquired [Recovering/Resolving]
  - Mitochondrial toxicity [Recovering/Resolving]
  - Progressive external ophthalmoplegia [Unknown]
